FAERS Safety Report 6143344-8 (Version None)
Quarter: 2009Q2

REPORT INFORMATION
  Report Type: 
  Country: None (occurrence: None)
  Receive Date: 20090403
  Receipt Date: 20090331
  Transmission Date: 20091009
  Serious: Yes (Hospitalization)
  Sender: FDA-Public Use
  Company Number: B0567816A

PATIENT
  Sex: Male

DRUGS (2)
  1. AUGMENTIN '125' [Suspect]
     Dosage: 1G TWICE PER DAY
     Route: 048
     Dates: start: 20090216, end: 20090226
  2. PREVISCAN [Suspect]
     Indication: DRUG USE FOR UNKNOWN INDICATION
     Dosage: .75UNIT PER DAY
     Route: 048
     Dates: start: 20090216, end: 20090227

REACTIONS (5)
  - CYTOLYTIC HEPATITIS [None]
  - DYSPNOEA [None]
  - HAEMATOMA [None]
  - HEPATITIS CHOLESTATIC [None]
  - PRURITUS [None]
